FAERS Safety Report 18501696 (Version 1)
Quarter: 2020Q4

REPORT INFORMATION
  Report Type: Spontaneous
  Country: GB (occurrence: GB)
  Receive Date: 20201113
  Receipt Date: 20201113
  Transmission Date: 20210114
  Serious: Yes (Hospitalization, Disabling, Other)
  Sender: FDA-Public Use
  Company Number: NVSC2020GB299635

PATIENT
  Age: 17 Year
  Sex: Male
  Weight: 64.2 kg

DRUGS (1)
  1. KYMRIAH [Suspect]
     Active Substance: TISAGENLECLEUCEL
     Indication: LYMPHOCYTE ADOPTIVE THERAPY
     Dosage: 20 ML, QD (2.2624X10^8)
     Route: 042
     Dates: start: 20200922, end: 20200922

REACTIONS (15)
  - Aphasia [Not Recovered/Not Resolved]
  - Tremor [Unknown]
  - Extraocular muscle paresis [Unknown]
  - Hyperkalaemia [Unknown]
  - Pyrexia [Recovered/Resolved]
  - Hyponatraemia [Unknown]
  - Cytokine release syndrome [Not Recovered/Not Resolved]
  - Seizure [Unknown]
  - Hepatic function abnormal [Unknown]
  - Cardiorenal syndrome [Unknown]
  - Immune effector cell-associated neurotoxicity syndrome [Not Recovered/Not Resolved]
  - Obstructive airways disorder [Unknown]
  - Diplopia [Unknown]
  - Muscular weakness [Not Recovered/Not Resolved]
  - Hypokalaemia [Unknown]

NARRATIVE: CASE EVENT DATE: 202009
